FAERS Safety Report 13830762 (Version 2)
Quarter: 2017Q4

REPORT INFORMATION
  Report Type: Spontaneous
  Country: FR (occurrence: FR)
  Receive Date: 20170803
  Receipt Date: 20171025
  Transmission Date: 20180320
  Serious: Yes (Life-Threatening, Hospitalization)
  Sender: FDA-Public Use
  Company Number: FR-JNJFOC-20170722169

PATIENT
  Age: 72 Year
  Sex: Female
  Weight: 36 kg

DRUGS (9)
  1. TEMESTA (LORAZEPAM) [Suspect]
     Active Substance: LORAZEPAM
     Indication: PRODUCT USED FOR UNKNOWN INDICATION
     Dosage: DUROGESIC 25?G + 12 ?G
     Route: 048
  2. FOSAVANCE [Concomitant]
     Active Substance: ALENDRONATE SODIUM\CHOLECALCIFEROL
     Route: 048
  3. DUPHALAC [Concomitant]
     Active Substance: LACTULOSE
     Route: 048
  4. IMOVANE [Concomitant]
     Active Substance: ZOPICLONE
     Route: 048
  5. MODOPAR [Concomitant]
     Active Substance: BENSERAZIDE HYDROCHLORIDE\LEVODOPA
     Indication: PARKINSON^S DISEASE
     Route: 048
  6. DOLIPRANE [Concomitant]
     Active Substance: ACETAMINOPHEN
     Route: 048
  7. TRAMADOL. [Suspect]
     Active Substance: TRAMADOL
     Indication: PRODUCT USED FOR UNKNOWN INDICATION
     Dosage: DUROGESIC 25?G + 12 ?G
     Route: 048
     Dates: start: 20161028, end: 20161203
  8. DUROGESIC [Suspect]
     Active Substance: FENTANYL
     Indication: PAIN
     Dosage: DUROGESIC 25?G + 12 ?G
     Route: 062
     Dates: start: 20161028, end: 20161203
  9. VERSATIS [Concomitant]
     Active Substance: LIDOCAINE
     Route: 003

REACTIONS (4)
  - Head injury [Recovered/Resolved with Sequelae]
  - Frontotemporal dementia [Not Recovered/Not Resolved]
  - Fall [Recovered/Resolved with Sequelae]
  - Coma [Recovered/Resolved with Sequelae]

NARRATIVE: CASE EVENT DATE: 20161203
